FAERS Safety Report 4875704-7 (Version None)
Quarter: 2006Q1

REPORT INFORMATION
  Report Type: 
  Country: None (occurrence: None)
  Receive Date: 20060105
  Receipt Date: 20051228
  Transmission Date: 20060701
  Serious: Yes (Hospitalization)
  Sender: FDA-Public Use
  Company Number: 2005AL005035

PATIENT
  Age: 39 Year
  Sex: Male

DRUGS (3)
  1. SERAX [Suspect]
     Dosage: 200 MG;QD;PO
     Route: 048
     Dates: start: 20040701
  2. TERCIAN [Concomitant]
  3. METHADONE [Concomitant]

REACTIONS (3)
  - DRUG ABUSER [None]
  - DRUG DEPENDENCE [None]
  - INTENTIONAL OVERDOSE [None]
